FAERS Safety Report 24440170 (Version 1)
Quarter: 2024Q4

REPORT INFORMATION
  Report Type: Spontaneous
  Country: DE (occurrence: DE)
  Receive Date: 20241016
  Receipt Date: 20241016
  Transmission Date: 20250115
  Serious: Yes (Other)
  Sender: CHEPLAPHARM
  Company Number: None

PATIENT
  Age: 63 Year
  Sex: Female
  Weight: 63 kg

DRUGS (8)
  1. CLONAZEPAM [Suspect]
     Active Substance: CLONAZEPAM
     Indication: Dystonia
     Dosage: DAILY DOSE: 0.5 MILLIGRAM
     Route: 048
     Dates: start: 202309, end: 202409
  2. CLONAZEPAM [Suspect]
     Active Substance: CLONAZEPAM
     Indication: Dystonia
     Route: 048
     Dates: start: 20231001, end: 20240901
  3. CLONAZEPAM [Suspect]
     Active Substance: CLONAZEPAM
     Indication: Dystonia
     Dosage: REDUCED AGAIN TO 0.5 MG?DAILY DOSE: 0.5 MILLIGRAM
     Route: 048
     Dates: start: 2024
  4. CLONAZEPAM [Suspect]
     Active Substance: CLONAZEPAM
     Indication: Dystonia
     Dosage: A DOSAGE INCREASE IN SEPTEMBER 2024 TO 1 TO 1.5 MG PER DAY.?DAILY DOSE: 1.5 MILLIGRAM
     Route: 048
     Dates: start: 202409
  5. BACLOFEN [Suspect]
     Active Substance: BACLOFEN
     Indication: Dystonia
  6. BACLOFEN [Suspect]
     Active Substance: BACLOFEN
     Indication: Dystonia
     Dosage: REDUCED FROM 40 MG TO 25 MG
  7. PRAMIPEXOLE [Concomitant]
     Active Substance: PRAMIPEXOLE\PRAMIPEXOLE DIHYDROCHLORIDE
     Dosage: 0.18 MG;?FROM 0.54 MG ONWARDS IT INCREASES DYSTONIA.
  8. CITALOPRAM [Concomitant]
     Active Substance: CITALOPRAM

REACTIONS (5)
  - Restless legs syndrome [Not Recovered/Not Resolved]
  - Gait disturbance [Not Recovered/Not Resolved]
  - Condition aggravated [Not Recovered/Not Resolved]
  - Fall [Not Recovered/Not Resolved]
  - Off label use [Not Recovered/Not Resolved]

NARRATIVE: CASE EVENT DATE: 20230101
